FAERS Safety Report 11195384 (Version 1)
Quarter: 2015Q2

REPORT INFORMATION
  Report Type: Spontaneous
  Country: US (occurrence: US)
  Receive Date: 20150617
  Receipt Date: 20150617
  Transmission Date: 20150821
  Serious: Yes (Other)
  Sender: FDA-Public Use
  Company Number: US-TEVA-568911USA

PATIENT
  Age: 91 Year
  Sex: Male
  Weight: 52 kg

DRUGS (3)
  1. WARFARIN [Suspect]
     Active Substance: WARFARIN
     Dates: end: 201502
  2. LISINOPRIL. [Concomitant]
     Active Substance: LISINOPRIL
     Indication: BLOOD PRESSURE
     Dosage: 40 MILLIGRAM DAILY;
     Route: 048
  3. ELIQUIS [Suspect]
     Active Substance: APIXABAN
     Indication: ANTICOAGULANT THERAPY
     Dosage: 5 MILLIGRAM DAILY;
     Route: 048
     Dates: start: 201503

REACTIONS (4)
  - Feeling abnormal [Not Recovered/Not Resolved]
  - Cerebrovascular accident [Unknown]
  - Chromaturia [Not Recovered/Not Resolved]
  - Haemorrhage [Not Recovered/Not Resolved]

NARRATIVE: CASE EVENT DATE: 201503
